FAERS Safety Report 12186963 (Version 1)
Quarter: 2016Q1

REPORT INFORMATION
  Report Type: Report from Study
  Country: AR (occurrence: AR)
  Receive Date: 20160317
  Receipt Date: 20160317
  Transmission Date: 20160526
  Serious: Yes (Other)
  Sender: FDA-Public Use
  Company Number: PHHY2016AR034453

PATIENT
  Sex: Male

DRUGS (3)
  1. DIOVAN [Suspect]
     Active Substance: VALSARTAN
     Indication: CARDIAC DISORDER
     Dosage: 320 OT, QD (IN THE MORNING) (FROM YEARS AGO TO 4 TO 6 MONTHS AGO)
     Route: 065
  2. ALPLAX [Concomitant]
     Indication: PRODUCT USED FOR UNKNOWN INDICATION
     Route: 065
  3. DIOVAN [Suspect]
     Active Substance: VALSARTAN
     Indication: HYPERTENSION
     Dosage: 160 OT,  Q12H (SINCE 4 TO 6 MONTH AGO APPROXIMATELY)
     Route: 065

REACTIONS (3)
  - Blood pressure increased [Recovering/Resolving]
  - Carotid artery occlusion [Recovering/Resolving]
  - Drug ineffective [Unknown]
